FAERS Safety Report 8004558-5 (Version None)
Quarter: 2011Q4

REPORT INFORMATION
  Report Type: 
  Country: None (occurrence: None)
  Receive Date: 20111220
  Receipt Date: 20111205
  Transmission Date: 20120403
  Serious: Yes (Other)
  Sender: FDA-Public Use
  Company Number: FK201102912

PATIENT
  Age: 14 Year
  Sex: Male

DRUGS (4)
  1. IDARUBICIN HYDROCHLORIDE [Suspect]
     Indication: ACUTE LYMPHOCYTIC LEUKAEMIA
  2. PREDNISOLONE [Suspect]
     Indication: ACUTE LYMPHOCYTIC LEUKAEMIA
  3. VINCRISTINE [Suspect]
     Indication: ACUTE LYMPHOCYTIC LEUKAEMIA
  4. L-ASPARAGINASE (L-ASPARAGINASE) (L-ASPARAGINASE) [Suspect]
     Indication: ACUTE LYMPHOCYTIC LEUKAEMIA

REACTIONS (5)
  - MYOCARDITIS [None]
  - HEPATITIS FULMINANT [None]
  - DISSEMINATED INTRAVASCULAR COAGULATION [None]
  - HERPES ZOSTER [None]
  - MULTI-ORGAN FAILURE [None]
